FAERS Safety Report 6035498-9 (Version None)
Quarter: 2009Q1

REPORT INFORMATION
  Report Type: 
  Country: None (occurrence: None)
  Receive Date: 20090113
  Receipt Date: 20090106
  Transmission Date: 20090719
  Serious: Yes (Hospitalization, Other)
  Sender: FDA-Public Use
  Company Number: US-PURDUE-USA_2009_0036438

PATIENT
  Sex: Male

DRUGS (4)
  1. OXYCONTIN [Suspect]
     Indication: PAIN
     Dosage: 40 MG, Q8H
  2. DURAGESIC-100 [Suspect]
     Indication: PAIN
     Dosage: 100 MCG, UNK
  3. PERCOCET [Suspect]
     Indication: PAIN
     Dosage: UNK, UNK
  4. MARIJUANA [Suspect]
     Indication: DRUG ABUSE

REACTIONS (3)
  - HOSPITALISATION [None]
  - INADEQUATE ANALGESIA [None]
  - SUBSTANCE ABUSE [None]
